FAERS Safety Report 10502709 (Version 3)
Quarter: 2015Q1

REPORT INFORMATION
  Report Type: Spontaneous
  Country: US (occurrence: US)
  Receive Date: 20141007
  Receipt Date: 20150127
  Transmission Date: 20150720
  Serious: Yes (Life-Threatening, Hospitalization)
  Sender: FDA-Public Use
  Company Number: US-BAYER-2014-148006

PATIENT
  Age: 21 Year
  Sex: Female
  Weight: 73.92 kg

DRUGS (6)
  1. ALIGN [Concomitant]
     Active Substance: BIFIDOBACTERIUM LONGUM SUBSP. INFANTIS
  2. MIRENA [Suspect]
     Active Substance: LEVONORGESTREL
     Indication: CONTRACEPTION
     Dosage: 20 MCG/24HR, CONT
     Route: 015
     Dates: start: 20061211, end: 20090612
  3. KEFLEX [Concomitant]
     Active Substance: CEPHALEXIN
  4. FLAGYL [Concomitant]
     Active Substance: METRONIDAZOLE\METRONIDAZOLE HYDROCHLORIDE
  5. AMOXICILLIN. [Concomitant]
     Active Substance: AMOXICILLIN
     Indication: BRONCHITIS
  6. DIFLUCAN [Concomitant]
     Active Substance: FLUCONAZOLE

REACTIONS (13)
  - Syncope [None]
  - Fear [None]
  - Embedded device [None]
  - Device dislocation [None]
  - Procedural pain [None]
  - Pain [None]
  - Emotional distress [None]
  - Back pain [Not Recovered/Not Resolved]
  - Procedural complication [None]
  - Device difficult to use [None]
  - Injury [None]
  - Anxiety [None]
  - Device issue [None]

NARRATIVE: CASE EVENT DATE: 200702
